FAERS Safety Report 17099881 (Version 3)
Quarter: 2022Q3

REPORT INFORMATION
  Report Type: Spontaneous
  Country: US (occurrence: US)
  Receive Date: 20191202
  Receipt Date: 20220624
  Transmission Date: 20221027
  Serious: Yes (Other)
  Sender: FDA-Public Use
  Company Number: None

PATIENT
  Sex: Male

DRUGS (2)
  1. PROMACTA [Suspect]
     Active Substance: ELTROMBOPAG OLAMINE
     Indication: Immune thrombocytopenia
     Dosage: 4 PACKETS, QD
     Route: 048
     Dates: start: 20190918
  2. PROMACTA [Suspect]
     Active Substance: ELTROMBOPAG OLAMINE

REACTIONS (5)
  - Thrombosis [Unknown]
  - Diarrhoea [Unknown]
  - Loose tooth [Unknown]
  - Abdominal pain [Unknown]
  - Labelled drug-food interaction issue [Unknown]
